FAERS Safety Report 19581893 (Version 2)
Quarter: 2021Q3

REPORT INFORMATION
  Report Type: Report from Study
  Country: DE (occurrence: DE)
  Receive Date: 20210719
  Receipt Date: 20210816
  Transmission Date: 20211014
  Serious: Yes (Hospitalization, Other)
  Sender: FDA-Public Use
  Company Number: DE-SHIRE-DE202024241

PATIENT
  Age: 57 Year
  Sex: Female

DRUGS (208)
  1. TEDUGLUTIDE [Suspect]
     Active Substance: TEDUGLUTIDE
     Indication: SHORT-BOWEL SYNDROME
     Dosage: 2.5 MILLIGRAM
     Route: 065
     Dates: start: 20150105, end: 20150701
  2. TEDUGLUTIDE [Suspect]
     Active Substance: TEDUGLUTIDE
     Dosage: 2.5 MILLIGRAM
     Route: 065
     Dates: start: 20150720, end: 20150726
  3. TEDUGLUTIDE [Suspect]
     Active Substance: TEDUGLUTIDE
     Dosage: 2.5 MILLIGRAM
     Route: 065
     Dates: start: 20150817, end: 20150823
  4. TEDUGLUTIDE [Suspect]
     Active Substance: TEDUGLUTIDE
     Dosage: 2.5 MILLIGRAM
     Route: 065
     Dates: start: 20150824, end: 20150830
  5. TEDUGLUTIDE [Suspect]
     Active Substance: TEDUGLUTIDE
     Dosage: 2.5 MILLIGRAM
     Route: 065
     Dates: start: 20151109, end: 20151115
  6. TEDUGLUTIDE [Suspect]
     Active Substance: TEDUGLUTIDE
     Dosage: 2.5 MILLIGRAM
     Route: 065
     Dates: start: 20151123, end: 20151129
  7. TEDUGLUTIDE [Suspect]
     Active Substance: TEDUGLUTIDE
     Dosage: 2.5 MILLIGRAM
     Route: 065
     Dates: start: 20151130, end: 20151206
  8. TEDUGLUTIDE [Suspect]
     Active Substance: TEDUGLUTIDE
     Dosage: 2.5 MILLIGRAM (TED DAILY DOSE 0.0500 MG/KG, TED DOSES PER WEEK 3)
     Route: 065
     Dates: start: 20151214, end: 20151220
  9. TEDUGLUTIDE [Suspect]
     Active Substance: TEDUGLUTIDE
     Dosage: 2.5 MILLIGRAM (TED DAILY DOSE 0.0500 MG/KG, TED DOSES PER WEEK 4)
     Route: 065
     Dates: start: 20151221, end: 20151227
  10. TEDUGLUTIDE [Suspect]
     Active Substance: TEDUGLUTIDE
     Dosage: 2.5 MILLIGRAM (TED DAILY DOSE 0.0500 MG/KG, TED DOSES PER WEEK 4)
     Route: 065
     Dates: start: 20151221, end: 20151227
  11. TEDUGLUTIDE [Suspect]
     Active Substance: TEDUGLUTIDE
     Dosage: 2.5 MILLIGRAM (TED DAILY DOSE 0.0500 MG/KG, TED DOSES PER WEEK 3)
     Route: 065
     Dates: start: 20160111, end: 20160117
  12. TEDUGLUTIDE [Suspect]
     Active Substance: TEDUGLUTIDE
     Dosage: 2.5 MILLIGRAM (TED DAILY DOSE 0.0500 MG/KG, TED DOSES PER WEEK 4)
     Route: 065
     Dates: start: 20160118, end: 20160124
  13. TEDUGLUTIDE [Suspect]
     Active Substance: TEDUGLUTIDE
     Dosage: 2.5 MILLIGRAM (TED DAILY DOSE 0.0500 MG/KG, TED DOSES PER WEEK 4)
     Route: 065
     Dates: start: 20160118, end: 20160124
  14. TEDUGLUTIDE [Suspect]
     Active Substance: TEDUGLUTIDE
     Dosage: 2.5 MILLIGRAM
     Route: 065
     Dates: start: 20160215, end: 20160221
  15. TEDUGLUTIDE [Suspect]
     Active Substance: TEDUGLUTIDE
     Dosage: 2.5 MILLIGRAM
     Route: 065
     Dates: start: 20160307, end: 20160313
  16. TEDUGLUTIDE [Suspect]
     Active Substance: TEDUGLUTIDE
     Dosage: 2.5 MILLIGRAM
     Route: 065
     Dates: start: 20160314, end: 20160320
  17. TEDUGLUTIDE [Suspect]
     Active Substance: TEDUGLUTIDE
     Dosage: 2.5 MILLIGRAM
     Route: 065
     Dates: start: 20160404, end: 20160410
  18. TEDUGLUTIDE [Suspect]
     Active Substance: TEDUGLUTIDE
     Dosage: 2.5 MILLIGRAM
     Route: 065
     Dates: start: 20160425, end: 20160501
  19. VITAMIN D [Concomitant]
     Active Substance: VITAMIN D NOS
     Indication: VITAMIN SUPPLEMENTATION
     Dosage: 20000.0 INTERNATIONAL UNIT, MONTHLY
     Route: 048
     Dates: start: 202011, end: 20210112
  20. VITAMIN D [Concomitant]
     Active Substance: VITAMIN D NOS
     Dosage: 1000.00 INTERNATIONAL UNIT, QD
     Route: 048
     Dates: start: 202002
  21. TEDUGLUTIDE [Suspect]
     Active Substance: TEDUGLUTIDE
     Dosage: 2.5 MILLIGRAM
     Route: 065
     Dates: start: 20150727, end: 20150802
  22. TEDUGLUTIDE [Suspect]
     Active Substance: TEDUGLUTIDE
     Dosage: 2.5 MILLIGRAM
     Route: 065
     Dates: start: 20150803, end: 20150809
  23. TEDUGLUTIDE [Suspect]
     Active Substance: TEDUGLUTIDE
     Dosage: 2.5 MILLIGRAM
     Route: 065
     Dates: start: 20150817, end: 20150823
  24. TEDUGLUTIDE [Suspect]
     Active Substance: TEDUGLUTIDE
     Dosage: 2.5 MILLIGRAM
     Route: 065
     Dates: start: 20150824, end: 20150830
  25. TEDUGLUTIDE [Suspect]
     Active Substance: TEDUGLUTIDE
     Dosage: 2.5 MILLIGRAM
     Route: 065
     Dates: start: 20150907, end: 20150913
  26. TEDUGLUTIDE [Suspect]
     Active Substance: TEDUGLUTIDE
     Dosage: 2.5 MILLIGRAM
     Route: 065
     Dates: start: 20150914, end: 20150920
  27. TEDUGLUTIDE [Suspect]
     Active Substance: TEDUGLUTIDE
     Dosage: 2.5 MILLIGRAM
     Route: 065
     Dates: start: 20150921, end: 20150927
  28. TEDUGLUTIDE [Suspect]
     Active Substance: TEDUGLUTIDE
     Dosage: 2.5 MILLIGRAM
     Route: 065
     Dates: start: 20150928, end: 20151004
  29. TEDUGLUTIDE [Suspect]
     Active Substance: TEDUGLUTIDE
     Dosage: 2.5 MILLIGRAM
     Route: 065
     Dates: start: 20151005, end: 20151011
  30. TEDUGLUTIDE [Suspect]
     Active Substance: TEDUGLUTIDE
     Dosage: 2.5 MILLIGRAM
     Route: 065
     Dates: start: 20151012, end: 20151018
  31. TEDUGLUTIDE [Suspect]
     Active Substance: TEDUGLUTIDE
     Dosage: 2.5 MILLIGRAM
     Route: 065
     Dates: start: 20151026, end: 20151101
  32. TEDUGLUTIDE [Suspect]
     Active Substance: TEDUGLUTIDE
     Dosage: 2.5 MILLIGRAM
     Route: 065
     Dates: start: 20151102, end: 20151108
  33. TEDUGLUTIDE [Suspect]
     Active Substance: TEDUGLUTIDE
     Dosage: 2.5 MILLIGRAM
     Route: 065
     Dates: start: 20151116, end: 20151122
  34. TEDUGLUTIDE [Suspect]
     Active Substance: TEDUGLUTIDE
     Dosage: 2.5 MILLIGRAM
     Route: 065
     Dates: start: 20151123, end: 20151129
  35. TEDUGLUTIDE [Suspect]
     Active Substance: TEDUGLUTIDE
     Dosage: 2.5 MILLIGRAM (TED DAILY DOSE 0.0500 MG/KG, TED DOSES PER WEEK 3)
     Route: 065
     Dates: start: 20151214, end: 20151220
  36. TEDUGLUTIDE [Suspect]
     Active Substance: TEDUGLUTIDE
     Dosage: 2.5 MILLIGRAM (TED DAILY DOSE 0.0500 MG/KG, TED DOSES PER WEEK 4)
     Route: 065
     Dates: start: 20160104, end: 20160110
  37. TEDUGLUTIDE [Suspect]
     Active Substance: TEDUGLUTIDE
     Dosage: 2.5 MILLIGRAM (TED DAILY DOSE 0.0500 MG/KG, TED DOSES PER WEEK 3)
     Route: 065
     Dates: start: 20160111, end: 20160117
  38. TEDUGLUTIDE [Suspect]
     Active Substance: TEDUGLUTIDE
     Dosage: 2.5 MILLIGRAM (TED DAILY DOSE 0.0500 MG/KG, TED DOSES PER WEEK 3)
     Route: 065
     Dates: start: 20160125, end: 20160131
  39. TEDUGLUTIDE [Suspect]
     Active Substance: TEDUGLUTIDE
     Dosage: 2.5 MILLIGRAM (TED DAILY DOSE 0.0500 MG/KG, TED DOSES PER WEEK 3)
     Route: 065
     Dates: start: 20160208, end: 20160214
  40. TEDUGLUTIDE [Suspect]
     Active Substance: TEDUGLUTIDE
     Dosage: 2.5 MILLIGRAM
     Route: 065
     Dates: start: 20160215, end: 20160221
  41. TEDUGLUTIDE [Suspect]
     Active Substance: TEDUGLUTIDE
     Dosage: 2.5 MILLIGRAM
     Route: 065
     Dates: start: 20160314, end: 20160320
  42. TEDUGLUTIDE [Suspect]
     Active Substance: TEDUGLUTIDE
     Dosage: 2.5 MILLIGRAM
     Route: 065
     Dates: start: 20160321, end: 20160327
  43. TEDUGLUTIDE [Suspect]
     Active Substance: TEDUGLUTIDE
     Dosage: 2.5 MILLIGRAM
     Route: 065
     Dates: start: 20160321, end: 20160327
  44. TEDUGLUTIDE [Suspect]
     Active Substance: TEDUGLUTIDE
     Dosage: 2.5 MILLIGRAM
     Route: 065
     Dates: start: 20160328, end: 20160403
  45. TEDUGLUTIDE [Suspect]
     Active Substance: TEDUGLUTIDE
     Dosage: 2.5 MILLIGRAM
     Route: 065
     Dates: start: 20160404, end: 20160410
  46. TEDUGLUTIDE [Suspect]
     Active Substance: TEDUGLUTIDE
     Dosage: 2.5 MILLIGRAM
     Route: 065
     Dates: start: 20160411, end: 20160417
  47. TEDUGLUTIDE [Suspect]
     Active Substance: TEDUGLUTIDE
     Dosage: 2.5 MILLIGRAM
     Route: 065
     Dates: start: 20160411, end: 20160417
  48. TEDUGLUTIDE [Suspect]
     Active Substance: TEDUGLUTIDE
     Dosage: 2.5 MILLIGRAM
     Route: 065
     Dates: start: 20160418, end: 20160424
  49. TEDUGLUTIDE [Suspect]
     Active Substance: TEDUGLUTIDE
     Dosage: 2.5 MILLIGRAM
     Route: 065
     Dates: start: 20160418, end: 20160424
  50. TEDUGLUTIDE [Suspect]
     Active Substance: TEDUGLUTIDE
     Dosage: 2.5 MILLIGRAM
     Route: 065
     Dates: start: 20160502, end: 20160508
  51. TEDUGLUTIDE [Suspect]
     Active Substance: TEDUGLUTIDE
     Dosage: 2.5 MILLIGRAM
     Route: 065
     Dates: start: 20160509, end: 20160515
  52. TEDUGLUTIDE [Suspect]
     Active Substance: TEDUGLUTIDE
     Dosage: 2.5 MILLIGRAM
     Route: 065
     Dates: start: 20160509, end: 20160515
  53. TEDUGLUTIDE [Suspect]
     Active Substance: TEDUGLUTIDE
     Dosage: 2.5 MILLIGRAM
     Route: 065
     Dates: start: 20160523, end: 20190529
  54. PANTOPRAZOLE [Concomitant]
     Active Substance: PANTOPRAZOLE
     Indication: HYPERCHLORHYDRIA
     Route: 065
  55. MAGNESIUM [Concomitant]
     Active Substance: MAGNESIUM
     Indication: MINERAL SUPPLEMENTATION
     Route: 065
  56. BARICITINIB. [Concomitant]
     Active Substance: BARICITINIB
     Indication: PRODUCT USED FOR UNKNOWN INDICATION
     Dosage: 9999.999 UNK
     Route: 048
     Dates: start: 20210113
  57. TEDUGLUTIDE [Suspect]
     Active Substance: TEDUGLUTIDE
     Dosage: 2.5 MILLIGRAM
     Route: 065
     Dates: start: 20150713, end: 20150719
  58. TEDUGLUTIDE [Suspect]
     Active Substance: TEDUGLUTIDE
     Dosage: 2.5 MILLIGRAM
     Route: 065
     Dates: start: 20150713, end: 20150719
  59. TEDUGLUTIDE [Suspect]
     Active Substance: TEDUGLUTIDE
     Dosage: 2.5 MILLIGRAM
     Route: 065
     Dates: start: 20150720, end: 20150726
  60. TEDUGLUTIDE [Suspect]
     Active Substance: TEDUGLUTIDE
     Dosage: 2.5 MILLIGRAM
     Route: 065
     Dates: start: 20150803, end: 20150809
  61. TEDUGLUTIDE [Suspect]
     Active Substance: TEDUGLUTIDE
     Dosage: 2.5 MILLIGRAM
     Route: 065
     Dates: start: 20150810, end: 20150816
  62. TEDUGLUTIDE [Suspect]
     Active Substance: TEDUGLUTIDE
     Dosage: 2.5 MILLIGRAM
     Route: 065
     Dates: start: 20150817, end: 20150823
  63. TEDUGLUTIDE [Suspect]
     Active Substance: TEDUGLUTIDE
     Dosage: 2.5 MILLIGRAM
     Route: 065
     Dates: start: 20150907, end: 20150913
  64. TEDUGLUTIDE [Suspect]
     Active Substance: TEDUGLUTIDE
     Dosage: 2.5 MILLIGRAM
     Route: 065
     Dates: start: 20150921, end: 20150927
  65. TEDUGLUTIDE [Suspect]
     Active Substance: TEDUGLUTIDE
     Dosage: 2.5 MILLIGRAM
     Route: 065
     Dates: start: 20150928, end: 20151004
  66. TEDUGLUTIDE [Suspect]
     Active Substance: TEDUGLUTIDE
     Dosage: 2.5 MILLIGRAM
     Route: 065
     Dates: start: 20151026, end: 20151101
  67. TEDUGLUTIDE [Suspect]
     Active Substance: TEDUGLUTIDE
     Dosage: 2.5 MILLIGRAM
     Route: 065
     Dates: start: 20151116, end: 20151122
  68. TEDUGLUTIDE [Suspect]
     Active Substance: TEDUGLUTIDE
     Dosage: 2.5 MILLIGRAM
     Route: 065
     Dates: start: 20151130, end: 20151206
  69. TEDUGLUTIDE [Suspect]
     Active Substance: TEDUGLUTIDE
     Dosage: 2.5 MILLIGRAM
     Route: 065
     Dates: start: 20151207, end: 20151213
  70. TEDUGLUTIDE [Suspect]
     Active Substance: TEDUGLUTIDE
     Dosage: 2.5 MILLIGRAM (TED DAILY DOSE 0.0500 MG/KG, TED DOSES PER WEEK 3)
     Route: 065
     Dates: start: 20151228, end: 20160103
  71. TEDUGLUTIDE [Suspect]
     Active Substance: TEDUGLUTIDE
     Dosage: 2.5 MILLIGRAM (TED DAILY DOSE 0.0500 MG/KG, TED DOSES PER WEEK 4)
     Route: 065
     Dates: start: 20160104, end: 20160110
  72. TEDUGLUTIDE [Suspect]
     Active Substance: TEDUGLUTIDE
     Dosage: 2.5 MILLIGRAM (TED DAILY DOSE 0.0500 MG/KG, TED DOSES PER WEEK 3)
     Route: 065
     Dates: start: 20160111, end: 20160117
  73. TEDUGLUTIDE [Suspect]
     Active Substance: TEDUGLUTIDE
     Dosage: 2.5 MILLIGRAM (TED DAILY DOSE 0.0500 MG/KG, TED DOSES PER WEEK 4)
     Route: 065
     Dates: start: 20160118, end: 20160124
  74. TEDUGLUTIDE [Suspect]
     Active Substance: TEDUGLUTIDE
     Dosage: 2.5 MILLIGRAM
     Route: 065
     Dates: start: 20160222, end: 20160228
  75. TEDUGLUTIDE [Suspect]
     Active Substance: TEDUGLUTIDE
     Dosage: 2.5 MILLIGRAM
     Route: 065
     Dates: start: 20160404, end: 20160410
  76. TEDUGLUTIDE [Suspect]
     Active Substance: TEDUGLUTIDE
     Dosage: 2.5 MILLIGRAM
     Route: 065
     Dates: start: 20160418, end: 20160424
  77. TEDUGLUTIDE [Suspect]
     Active Substance: TEDUGLUTIDE
     Dosage: 2.5 MILLIGRAM
     Route: 065
     Dates: start: 20160502, end: 20160508
  78. TEDUGLUTIDE [Suspect]
     Active Substance: TEDUGLUTIDE
     Dosage: 2.5 MILLIGRAM
     Route: 065
     Dates: start: 20160523, end: 20190529
  79. PREDNISOLON [Concomitant]
     Active Substance: PREDNISOLONE
     Indication: RHEUMATOID ARTHRITIS
     Route: 065
  80. TEDUGLUTIDE [Suspect]
     Active Substance: TEDUGLUTIDE
     Dosage: 2.5 MILLIGRAM
     Route: 065
     Dates: start: 20150713, end: 20150719
  81. TEDUGLUTIDE [Suspect]
     Active Substance: TEDUGLUTIDE
     Dosage: 2.5 MILLIGRAM
     Route: 065
     Dates: start: 20150727, end: 20150802
  82. TEDUGLUTIDE [Suspect]
     Active Substance: TEDUGLUTIDE
     Dosage: 2.5 MILLIGRAM
     Route: 065
     Dates: start: 20150803, end: 20150809
  83. TEDUGLUTIDE [Suspect]
     Active Substance: TEDUGLUTIDE
     Dosage: 2.5 MILLIGRAM
     Route: 065
     Dates: start: 20150803, end: 20150809
  84. TEDUGLUTIDE [Suspect]
     Active Substance: TEDUGLUTIDE
     Dosage: 2.5 MILLIGRAM
     Route: 065
     Dates: start: 20150817, end: 20150823
  85. TEDUGLUTIDE [Suspect]
     Active Substance: TEDUGLUTIDE
     Dosage: 2.5 MILLIGRAM
     Route: 065
     Dates: start: 20150831, end: 20150906
  86. TEDUGLUTIDE [Suspect]
     Active Substance: TEDUGLUTIDE
     Dosage: 2.5 MILLIGRAM
     Route: 065
     Dates: start: 20150831, end: 20150906
  87. TEDUGLUTIDE [Suspect]
     Active Substance: TEDUGLUTIDE
     Dosage: 2.5 MILLIGRAM
     Route: 065
     Dates: start: 20150914, end: 20150920
  88. TEDUGLUTIDE [Suspect]
     Active Substance: TEDUGLUTIDE
     Dosage: 2.5 MILLIGRAM
     Route: 065
     Dates: start: 20150914, end: 20150920
  89. TEDUGLUTIDE [Suspect]
     Active Substance: TEDUGLUTIDE
     Dosage: 2.5 MILLIGRAM
     Route: 065
     Dates: start: 20150921, end: 20150927
  90. TEDUGLUTIDE [Suspect]
     Active Substance: TEDUGLUTIDE
     Dosage: 2.5 MILLIGRAM
     Route: 065
     Dates: start: 20150921, end: 20150927
  91. TEDUGLUTIDE [Suspect]
     Active Substance: TEDUGLUTIDE
     Dosage: 2.5 MILLIGRAM
     Route: 065
     Dates: start: 20150928, end: 20151004
  92. TEDUGLUTIDE [Suspect]
     Active Substance: TEDUGLUTIDE
     Dosage: 2.5 MILLIGRAM
     Route: 065
     Dates: start: 20151012, end: 20151018
  93. TEDUGLUTIDE [Suspect]
     Active Substance: TEDUGLUTIDE
     Dosage: 2.5 MILLIGRAM
     Route: 065
     Dates: start: 20151012, end: 20151018
  94. TEDUGLUTIDE [Suspect]
     Active Substance: TEDUGLUTIDE
     Dosage: 2.5 MILLIGRAM
     Route: 065
     Dates: start: 20151102, end: 20151108
  95. TEDUGLUTIDE [Suspect]
     Active Substance: TEDUGLUTIDE
     Dosage: 2.5 MILLIGRAM
     Route: 065
     Dates: start: 20151109, end: 20151115
  96. TEDUGLUTIDE [Suspect]
     Active Substance: TEDUGLUTIDE
     Dosage: 2.5 MILLIGRAM
     Route: 065
     Dates: start: 20151123, end: 20151129
  97. TEDUGLUTIDE [Suspect]
     Active Substance: TEDUGLUTIDE
     Dosage: 2.5 MILLIGRAM (TED DAILY DOSE 0.0500 MG/KG, TED DOSES PER WEEK 4)
     Route: 065
     Dates: start: 20160104, end: 20160110
  98. TEDUGLUTIDE [Suspect]
     Active Substance: TEDUGLUTIDE
     Dosage: 2.5 MILLIGRAM (TED DAILY DOSE 0.0500 MG/KG, TED DOSES PER WEEK 4)
     Route: 065
     Dates: start: 20160104, end: 20160110
  99. TEDUGLUTIDE [Suspect]
     Active Substance: TEDUGLUTIDE
     Dosage: 2.5 MILLIGRAM (TED DAILY DOSE 0.0500 MG/KG, TED DOSES PER WEEK 3)
     Route: 065
     Dates: start: 20160125, end: 20160131
  100. TEDUGLUTIDE [Suspect]
     Active Substance: TEDUGLUTIDE
     Dosage: 2.5 MILLIGRAM (TED DAILY DOSE 0.0500 MG/KG, TED DOSES PER WEEK 3)
     Route: 065
     Dates: start: 20160208, end: 20160214
  101. TEDUGLUTIDE [Suspect]
     Active Substance: TEDUGLUTIDE
     Dosage: 2.5 MILLIGRAM
     Route: 065
     Dates: start: 20160222, end: 20160228
  102. TEDUGLUTIDE [Suspect]
     Active Substance: TEDUGLUTIDE
     Dosage: 2.5 MILLIGRAM
     Route: 065
     Dates: start: 20160229, end: 20160306
  103. TEDUGLUTIDE [Suspect]
     Active Substance: TEDUGLUTIDE
     Dosage: 2.5 MILLIGRAM
     Route: 065
     Dates: start: 20160314, end: 20160320
  104. TEDUGLUTIDE [Suspect]
     Active Substance: TEDUGLUTIDE
     Dosage: 2.5 MILLIGRAM
     Route: 065
     Dates: start: 20160411, end: 20160417
  105. TEDUGLUTIDE [Suspect]
     Active Substance: TEDUGLUTIDE
     Dosage: 2.5 MILLIGRAM
     Route: 065
     Dates: start: 20160425, end: 20160501
  106. TEDUGLUTIDE [Suspect]
     Active Substance: TEDUGLUTIDE
     Dosage: 2.5 MILLIGRAM
     Route: 065
     Dates: start: 20160509, end: 20160515
  107. TEDUGLUTIDE [Suspect]
     Active Substance: TEDUGLUTIDE
     Dosage: 2.5 MILLIGRAM
     Route: 065
     Dates: start: 20160523, end: 20190529
  108. TEDUGLUTIDE [Suspect]
     Active Substance: TEDUGLUTIDE
     Dosage: 2.5 MILLIGRAM
     Route: 065
     Dates: start: 20150702, end: 20150705
  109. TEDUGLUTIDE [Suspect]
     Active Substance: TEDUGLUTIDE
     Dosage: 2.5 MILLIGRAM
     Route: 065
     Dates: start: 20150702, end: 20150705
  110. TEDUGLUTIDE [Suspect]
     Active Substance: TEDUGLUTIDE
     Dosage: 2.5 MILLIGRAM
     Route: 065
     Dates: start: 20150706, end: 20150712
  111. TEDUGLUTIDE [Suspect]
     Active Substance: TEDUGLUTIDE
     Dosage: 2.5 MILLIGRAM
     Route: 065
     Dates: start: 20150713, end: 20150719
  112. TEDUGLUTIDE [Suspect]
     Active Substance: TEDUGLUTIDE
     Dosage: 2.5 MILLIGRAM
     Route: 065
     Dates: start: 20150810, end: 20150816
  113. TEDUGLUTIDE [Suspect]
     Active Substance: TEDUGLUTIDE
     Dosage: 2.5 MILLIGRAM
     Route: 065
     Dates: start: 20150907, end: 20150913
  114. TEDUGLUTIDE [Suspect]
     Active Substance: TEDUGLUTIDE
     Dosage: 2.5 MILLIGRAM
     Route: 065
     Dates: start: 20151026, end: 20151101
  115. TEDUGLUTIDE [Suspect]
     Active Substance: TEDUGLUTIDE
     Dosage: 2.5 MILLIGRAM
     Route: 065
     Dates: start: 20151109, end: 20151115
  116. TEDUGLUTIDE [Suspect]
     Active Substance: TEDUGLUTIDE
     Dosage: 2.5 MILLIGRAM
     Route: 065
     Dates: start: 20151116, end: 20151122
  117. TEDUGLUTIDE [Suspect]
     Active Substance: TEDUGLUTIDE
     Dosage: 2.5 MILLIGRAM (TED DAILY DOSE 0.0500 MG/KG, TED DOSES PER WEEK 4)
     Route: 065
     Dates: start: 20160118, end: 20160124
  118. TEDUGLUTIDE [Suspect]
     Active Substance: TEDUGLUTIDE
     Dosage: 2.5 MILLIGRAM (TED DAILY DOSE 0.0500 MG/KG, TED DOSES PER WEEK 3)
     Route: 065
     Dates: start: 20160125, end: 20160131
  119. TEDUGLUTIDE [Suspect]
     Active Substance: TEDUGLUTIDE
     Dosage: 2.5 MILLIGRAM (TED DAILY DOSE 0.0500 MG/KG, TED DOSES PER WEEK 3)
     Route: 065
     Dates: start: 20160125, end: 20160131
  120. TEDUGLUTIDE [Suspect]
     Active Substance: TEDUGLUTIDE
     Dosage: 2.5 MILLIGRAM (TED DAILY DOSE 0.0500 MG/KG, TED DOSES PER WEEK 3)
     Route: 065
     Dates: start: 20160208, end: 20160214
  121. TEDUGLUTIDE [Suspect]
     Active Substance: TEDUGLUTIDE
     Dosage: 2.5 MILLIGRAM
     Route: 065
     Dates: start: 20160215, end: 20160221
  122. TEDUGLUTIDE [Suspect]
     Active Substance: TEDUGLUTIDE
     Dosage: 2.5 MILLIGRAM
     Route: 065
     Dates: start: 20160307, end: 20160313
  123. TEDUGLUTIDE [Suspect]
     Active Substance: TEDUGLUTIDE
     Dosage: 2.5 MILLIGRAM
     Route: 065
     Dates: start: 20160307, end: 20160313
  124. TEDUGLUTIDE [Suspect]
     Active Substance: TEDUGLUTIDE
     Dosage: 2.5 MILLIGRAM
     Route: 065
     Dates: start: 20160321, end: 20160327
  125. TEDUGLUTIDE [Suspect]
     Active Substance: TEDUGLUTIDE
     Dosage: 2.5 MILLIGRAM
     Route: 065
     Dates: start: 20160328, end: 20160403
  126. TEDUGLUTIDE [Suspect]
     Active Substance: TEDUGLUTIDE
     Dosage: 2.5 MILLIGRAM
     Route: 065
     Dates: start: 20160502, end: 20160508
  127. TEDUGLUTIDE [Suspect]
     Active Substance: TEDUGLUTIDE
     Dosage: 2.5 MILLIGRAM
     Route: 065
     Dates: start: 20160516, end: 20160522
  128. TEDUGLUTIDE [Suspect]
     Active Substance: TEDUGLUTIDE
     Dosage: 2.5 MILLIGRAM
     Route: 065
     Dates: start: 20180816, end: 20180822
  129. TEDUGLUTIDE [Suspect]
     Active Substance: TEDUGLUTIDE
     Dosage: 2.5 MILLIGRAM
     Route: 065
     Dates: start: 20180816, end: 20180822
  130. TEDUGLUTIDE [Suspect]
     Active Substance: TEDUGLUTIDE
     Dosage: 2.5 MILLIGRAM
     Route: 065
     Dates: start: 20150706, end: 20150712
  131. TEDUGLUTIDE [Suspect]
     Active Substance: TEDUGLUTIDE
     Dosage: 2.5 MILLIGRAM
     Route: 065
     Dates: start: 20150706, end: 20150712
  132. TEDUGLUTIDE [Suspect]
     Active Substance: TEDUGLUTIDE
     Dosage: 2.5 MILLIGRAM
     Route: 065
     Dates: start: 20150706, end: 20150712
  133. TEDUGLUTIDE [Suspect]
     Active Substance: TEDUGLUTIDE
     Dosage: 2.5 MILLIGRAM
     Route: 065
     Dates: start: 20150727, end: 20150802
  134. TEDUGLUTIDE [Suspect]
     Active Substance: TEDUGLUTIDE
     Dosage: 2.5 MILLIGRAM
     Route: 065
     Dates: start: 20151005, end: 20151011
  135. TEDUGLUTIDE [Suspect]
     Active Substance: TEDUGLUTIDE
     Dosage: 2.5 MILLIGRAM
     Route: 065
     Dates: start: 20151012, end: 20151018
  136. TEDUGLUTIDE [Suspect]
     Active Substance: TEDUGLUTIDE
     Dosage: 2.5 MILLIGRAM
     Route: 065
     Dates: start: 20151019, end: 20151025
  137. TEDUGLUTIDE [Suspect]
     Active Substance: TEDUGLUTIDE
     Dosage: 2.5 MILLIGRAM
     Route: 065
     Dates: start: 20151019, end: 20151025
  138. TEDUGLUTIDE [Suspect]
     Active Substance: TEDUGLUTIDE
     Dosage: 2.5 MILLIGRAM
     Route: 065
     Dates: start: 20151026, end: 20151101
  139. TEDUGLUTIDE [Suspect]
     Active Substance: TEDUGLUTIDE
     Dosage: 2.5 MILLIGRAM
     Route: 065
     Dates: start: 20151102, end: 20151108
  140. TEDUGLUTIDE [Suspect]
     Active Substance: TEDUGLUTIDE
     Dosage: 2.5 MILLIGRAM
     Route: 065
     Dates: start: 20151116, end: 20151122
  141. TEDUGLUTIDE [Suspect]
     Active Substance: TEDUGLUTIDE
     Dosage: 2.5 MILLIGRAM
     Route: 065
     Dates: start: 20151207, end: 20151213
  142. TEDUGLUTIDE [Suspect]
     Active Substance: TEDUGLUTIDE
     Dosage: 2.5 MILLIGRAM
     Route: 065
     Dates: start: 20151207, end: 20151213
  143. TEDUGLUTIDE [Suspect]
     Active Substance: TEDUGLUTIDE
     Dosage: 2.5 MILLIGRAM
     Route: 065
     Dates: start: 20151207, end: 20151213
  144. TEDUGLUTIDE [Suspect]
     Active Substance: TEDUGLUTIDE
     Dosage: 2.5 MILLIGRAM (TED DAILY DOSE 0.0500 MG/KG, TED DOSES PER WEEK 3)
     Route: 065
     Dates: start: 20151214, end: 20151220
  145. TEDUGLUTIDE [Suspect]
     Active Substance: TEDUGLUTIDE
     Dosage: 2.5 MILLIGRAM (TED DAILY DOSE 0.0500 MG/KG, TED DOSES PER WEEK 3)
     Route: 065
     Dates: start: 20151214, end: 20151220
  146. TEDUGLUTIDE [Suspect]
     Active Substance: TEDUGLUTIDE
     Dosage: 2.5 MILLIGRAM (TED DAILY DOSE 0.0500 MG/KG, TED DOSES PER WEEK 4)
     Route: 065
     Dates: start: 20151221, end: 20151227
  147. TEDUGLUTIDE [Suspect]
     Active Substance: TEDUGLUTIDE
     Dosage: 2.5 MILLIGRAM (TED DAILY DOSE 0.0500 MG/KG, TED DOSES PER WEEK 3)
     Route: 065
     Dates: start: 20151228, end: 20160103
  148. TEDUGLUTIDE [Suspect]
     Active Substance: TEDUGLUTIDE
     Dosage: 2.5 MILLIGRAM (TED DAILY DOSE 0.0500 MG/KG, TED DOSES PER WEEK 3)
     Route: 065
     Dates: start: 20160111, end: 20160117
  149. TEDUGLUTIDE [Suspect]
     Active Substance: TEDUGLUTIDE
     Dosage: 2.5 MILLIGRAM (TED DAILY DOSE 0.0500 MG/KG, TED DOSES PER WEEK 4)
     Route: 065
     Dates: start: 20160201, end: 20160207
  150. TEDUGLUTIDE [Suspect]
     Active Substance: TEDUGLUTIDE
     Dosage: 2.5 MILLIGRAM (TED DAILY DOSE 0.0500 MG/KG, TED DOSES PER WEEK 4)
     Route: 065
     Dates: start: 20160201, end: 20160207
  151. TEDUGLUTIDE [Suspect]
     Active Substance: TEDUGLUTIDE
     Dosage: 2.5 MILLIGRAM
     Route: 065
     Dates: start: 20160229, end: 20160306
  152. TEDUGLUTIDE [Suspect]
     Active Substance: TEDUGLUTIDE
     Dosage: 2.5 MILLIGRAM
     Route: 065
     Dates: start: 20160314, end: 20160320
  153. TEDUGLUTIDE [Suspect]
     Active Substance: TEDUGLUTIDE
     Dosage: 2.5 MILLIGRAM
     Route: 065
     Dates: start: 20160328, end: 20160403
  154. TEDUGLUTIDE [Suspect]
     Active Substance: TEDUGLUTIDE
     Dosage: 2.5 MILLIGRAM
     Route: 065
     Dates: start: 20160404, end: 20160410
  155. TEDUGLUTIDE [Suspect]
     Active Substance: TEDUGLUTIDE
     Dosage: 2.5 MILLIGRAM
     Route: 065
     Dates: start: 20160425, end: 20160501
  156. TEDUGLUTIDE [Suspect]
     Active Substance: TEDUGLUTIDE
     Dosage: 2.5 MILLIGRAM
     Route: 065
     Dates: start: 20160502, end: 20160508
  157. TEDUGLUTIDE [Suspect]
     Active Substance: TEDUGLUTIDE
     Dosage: 2.5 MILLIGRAM
     Route: 065
     Dates: start: 20160516, end: 20160522
  158. TEDUGLUTIDE [Suspect]
     Active Substance: TEDUGLUTIDE
     Dosage: 2.5 MILLIGRAM
     Route: 065
     Dates: start: 20160523, end: 20190529
  159. KALINOR [Concomitant]
     Indication: PRODUCT USED FOR UNKNOWN INDICATION
     Dosage: 600.00 MILLIGRAM, QD
     Route: 048
     Dates: start: 202008
  160. TEDUGLUTIDE [Suspect]
     Active Substance: TEDUGLUTIDE
     Indication: SHORT-BOWEL SYNDROME
     Dosage: 2.5 MILLIGRAM
     Route: 065
     Dates: start: 20150105, end: 20150701
  161. TEDUGLUTIDE [Suspect]
     Active Substance: TEDUGLUTIDE
     Dosage: 2.5 MILLIGRAM
     Route: 065
     Dates: start: 20150720, end: 20150726
  162. TEDUGLUTIDE [Suspect]
     Active Substance: TEDUGLUTIDE
     Dosage: 2.5 MILLIGRAM
     Route: 065
     Dates: start: 20150720, end: 20150726
  163. TEDUGLUTIDE [Suspect]
     Active Substance: TEDUGLUTIDE
     Dosage: 2.5 MILLIGRAM
     Route: 065
     Dates: start: 20150810, end: 20150816
  164. TEDUGLUTIDE [Suspect]
     Active Substance: TEDUGLUTIDE
     Dosage: 2.5 MILLIGRAM
     Route: 065
     Dates: start: 20150831, end: 20150906
  165. TEDUGLUTIDE [Suspect]
     Active Substance: TEDUGLUTIDE
     Dosage: 2.5 MILLIGRAM
     Route: 065
     Dates: start: 20150907, end: 20150913
  166. TEDUGLUTIDE [Suspect]
     Active Substance: TEDUGLUTIDE
     Dosage: 2.5 MILLIGRAM
     Route: 065
     Dates: start: 20150914, end: 20150920
  167. TEDUGLUTIDE [Suspect]
     Active Substance: TEDUGLUTIDE
     Dosage: 2.5 MILLIGRAM
     Route: 065
     Dates: start: 20150928, end: 20151004
  168. TEDUGLUTIDE [Suspect]
     Active Substance: TEDUGLUTIDE
     Dosage: 2.5 MILLIGRAM
     Route: 065
     Dates: start: 20151005, end: 20151011
  169. TEDUGLUTIDE [Suspect]
     Active Substance: TEDUGLUTIDE
     Dosage: 2.5 MILLIGRAM
     Route: 065
     Dates: start: 20151005, end: 20151011
  170. TEDUGLUTIDE [Suspect]
     Active Substance: TEDUGLUTIDE
     Dosage: 2.5 MILLIGRAM
     Route: 065
     Dates: start: 20151019, end: 20151025
  171. TEDUGLUTIDE [Suspect]
     Active Substance: TEDUGLUTIDE
     Dosage: 2.5 MILLIGRAM
     Route: 065
     Dates: start: 20151019, end: 20151025
  172. TEDUGLUTIDE [Suspect]
     Active Substance: TEDUGLUTIDE
     Dosage: 2.5 MILLIGRAM
     Route: 065
     Dates: start: 20151102, end: 20151108
  173. TEDUGLUTIDE [Suspect]
     Active Substance: TEDUGLUTIDE
     Dosage: 2.5 MILLIGRAM
     Route: 065
     Dates: start: 20151109, end: 20151115
  174. TEDUGLUTIDE [Suspect]
     Active Substance: TEDUGLUTIDE
     Dosage: 2.5 MILLIGRAM (TED DAILY DOSE 0.0500 MG/KG, TED DOSES PER WEEK 4)
     Route: 065
     Dates: start: 20151221, end: 20151227
  175. TEDUGLUTIDE [Suspect]
     Active Substance: TEDUGLUTIDE
     Dosage: 2.5 MILLIGRAM (TED DAILY DOSE 0.0500 MG/KG, TED DOSES PER WEEK 4)
     Route: 065
     Dates: start: 20160201, end: 20160207
  176. TEDUGLUTIDE [Suspect]
     Active Substance: TEDUGLUTIDE
     Dosage: 2.5 MILLIGRAM (TED DAILY DOSE 0.0500 MG/KG, TED DOSES PER WEEK 4)
     Route: 065
     Dates: start: 20160201, end: 20160207
  177. TEDUGLUTIDE [Suspect]
     Active Substance: TEDUGLUTIDE
     Dosage: 2.5 MILLIGRAM
     Route: 065
     Dates: start: 20160215, end: 20160221
  178. TEDUGLUTIDE [Suspect]
     Active Substance: TEDUGLUTIDE
     Dosage: 2.5 MILLIGRAM
     Route: 065
     Dates: start: 20160222, end: 20160228
  179. TEDUGLUTIDE [Suspect]
     Active Substance: TEDUGLUTIDE
     Dosage: 2.5 MILLIGRAM
     Route: 065
     Dates: start: 20160229, end: 20160306
  180. TEDUGLUTIDE [Suspect]
     Active Substance: TEDUGLUTIDE
     Dosage: 2.5 MILLIGRAM
     Route: 065
     Dates: start: 20160307, end: 20160313
  181. TEDUGLUTIDE [Suspect]
     Active Substance: TEDUGLUTIDE
     Dosage: 2.5 MILLIGRAM
     Route: 065
     Dates: start: 20160411, end: 20160417
  182. TEDUGLUTIDE [Suspect]
     Active Substance: TEDUGLUTIDE
     Dosage: 2.5 MILLIGRAM
     Route: 065
     Dates: start: 20160425, end: 20160501
  183. TEDUGLUTIDE [Suspect]
     Active Substance: TEDUGLUTIDE
     Dosage: 2.5 MILLIGRAM
     Route: 065
     Dates: start: 20160509, end: 20160515
  184. TEDUGLUTIDE [Suspect]
     Active Substance: TEDUGLUTIDE
     Dosage: 2.5 MILLIGRAM
     Route: 065
     Dates: start: 20160516, end: 20160522
  185. TEDUGLUTIDE [Suspect]
     Active Substance: TEDUGLUTIDE
     Dosage: 2.5 MILLIGRAM
     Route: 065
     Dates: start: 20180816, end: 20180822
  186. TEDUGLUTIDE [Suspect]
     Active Substance: TEDUGLUTIDE
     Dosage: 2.5 MILLIGRAM
     Route: 065
     Dates: start: 20180816, end: 20180822
  187. TEDUGLUTIDE [Suspect]
     Active Substance: TEDUGLUTIDE
     Indication: SHORT-BOWEL SYNDROME
     Dosage: 2.5 MILLIGRAM
     Route: 065
     Dates: start: 20150105, end: 20150701
  188. TEDUGLUTIDE [Suspect]
     Active Substance: TEDUGLUTIDE
     Indication: SHORT-BOWEL SYNDROME
     Dosage: 2.5 MILLIGRAM
     Route: 065
     Dates: start: 20150105, end: 20150701
  189. TEDUGLUTIDE [Suspect]
     Active Substance: TEDUGLUTIDE
     Dosage: 2.5 MILLIGRAM
     Route: 065
     Dates: start: 20150702, end: 20150705
  190. TEDUGLUTIDE [Suspect]
     Active Substance: TEDUGLUTIDE
     Dosage: 2.5 MILLIGRAM
     Route: 065
     Dates: start: 20150702, end: 20150705
  191. TEDUGLUTIDE [Suspect]
     Active Substance: TEDUGLUTIDE
     Dosage: 2.5 MILLIGRAM
     Route: 065
     Dates: start: 20150727, end: 20150802
  192. TEDUGLUTIDE [Suspect]
     Active Substance: TEDUGLUTIDE
     Dosage: 2.5 MILLIGRAM
     Route: 065
     Dates: start: 20150810, end: 20150816
  193. TEDUGLUTIDE [Suspect]
     Active Substance: TEDUGLUTIDE
     Dosage: 2.5 MILLIGRAM
     Route: 065
     Dates: start: 20150824, end: 20150830
  194. TEDUGLUTIDE [Suspect]
     Active Substance: TEDUGLUTIDE
     Dosage: 2.5 MILLIGRAM
     Route: 065
     Dates: start: 20150824, end: 20150830
  195. TEDUGLUTIDE [Suspect]
     Active Substance: TEDUGLUTIDE
     Dosage: 2.5 MILLIGRAM
     Route: 065
     Dates: start: 20150831, end: 20150906
  196. TEDUGLUTIDE [Suspect]
     Active Substance: TEDUGLUTIDE
     Dosage: 2.5 MILLIGRAM
     Route: 065
     Dates: start: 20151123, end: 20151129
  197. TEDUGLUTIDE [Suspect]
     Active Substance: TEDUGLUTIDE
     Dosage: 2.5 MILLIGRAM
     Route: 065
     Dates: start: 20151130, end: 20151206
  198. TEDUGLUTIDE [Suspect]
     Active Substance: TEDUGLUTIDE
     Dosage: 2.5 MILLIGRAM
     Route: 065
     Dates: start: 20151130, end: 20151206
  199. TEDUGLUTIDE [Suspect]
     Active Substance: TEDUGLUTIDE
     Dosage: 2.5 MILLIGRAM (TED DAILY DOSE 0.0500 MG/KG, TED DOSES PER WEEK 3)
     Route: 065
     Dates: start: 20151228, end: 20160103
  200. TEDUGLUTIDE [Suspect]
     Active Substance: TEDUGLUTIDE
     Dosage: 2.5 MILLIGRAM (TED DAILY DOSE 0.0500 MG/KG, TED DOSES PER WEEK 3)
     Route: 065
     Dates: start: 20151228, end: 20160103
  201. TEDUGLUTIDE [Suspect]
     Active Substance: TEDUGLUTIDE
     Dosage: 2.5 MILLIGRAM (TED DAILY DOSE 0.0500 MG/KG, TED DOSES PER WEEK 3)
     Route: 065
     Dates: start: 20160208, end: 20160214
  202. TEDUGLUTIDE [Suspect]
     Active Substance: TEDUGLUTIDE
     Dosage: 2.5 MILLIGRAM
     Route: 065
     Dates: start: 20160222, end: 20160228
  203. TEDUGLUTIDE [Suspect]
     Active Substance: TEDUGLUTIDE
     Dosage: 2.5 MILLIGRAM
     Route: 065
     Dates: start: 20160229, end: 20160306
  204. TEDUGLUTIDE [Suspect]
     Active Substance: TEDUGLUTIDE
     Dosage: 2.5 MILLIGRAM
     Route: 065
     Dates: start: 20160321, end: 20160327
  205. TEDUGLUTIDE [Suspect]
     Active Substance: TEDUGLUTIDE
     Dosage: 2.5 MILLIGRAM
     Route: 065
     Dates: start: 20160328, end: 20160403
  206. TEDUGLUTIDE [Suspect]
     Active Substance: TEDUGLUTIDE
     Dosage: 2.5 MILLIGRAM
     Route: 065
     Dates: start: 20160418, end: 20160424
  207. TEDUGLUTIDE [Suspect]
     Active Substance: TEDUGLUTIDE
     Dosage: 2.5 MILLIGRAM
     Route: 065
     Dates: start: 20160516, end: 20160522
  208. VIGANTOL [Concomitant]
     Indication: VITAMIN SUPPLEMENTATION
     Route: 065

REACTIONS (8)
  - Large intestine perforation [Recovered/Resolved]
  - Nephrolithiasis [Recovered/Resolved]
  - Gastrointestinal tract adenoma [Recovered/Resolved]
  - Adenoma benign [Unknown]
  - Urinary tract obstruction [Recovered/Resolved]
  - Ileal perforation [Recovered/Resolved]
  - Aortic arteriosclerosis [Not Recovered/Not Resolved]
  - Ureteric perforation [Recovered/Resolved]

NARRATIVE: CASE EVENT DATE: 20180704
